FAERS Safety Report 14660439 (Version 1)
Quarter: 2018Q1

REPORT INFORMATION
  Report Type: Spontaneous
  Country: US (occurrence: US)
  Receive Date: 20180317
  Receipt Date: 20180317
  Transmission Date: 20180509
  Serious: Yes (Life-Threatening, Hospitalization)
  Sender: FDA-Public Use
  Company Number: None

PATIENT
  Age: 42 Year
  Sex: Female
  Weight: 87.75 kg

DRUGS (8)
  1. ZANAFLEX [Concomitant]
     Active Substance: TIZANIDINE HYDROCHLORIDE
  2. ADDERALL XR [Concomitant]
     Active Substance: AMPHETAMINE ASPARTATE\AMPHETAMINE SULFATE\DEXTROAMPHETAMINE SACCHARATE\DEXTROAMPHETAMINE SULFATE
  3. LUNESTA [Concomitant]
     Active Substance: ESZOPICLONE
  4. PEPCID [Concomitant]
     Active Substance: FAMOTIDINE
  5. BIOTIN [Concomitant]
     Active Substance: BIOTIN
  6. OCREVUS [Suspect]
     Active Substance: OCRELIZUMAB
     Indication: MULTIPLE SCLEROSIS
     Dosage: ?          QUANTITY:1 INFUSION;OTHER FREQUENCY:2ND 1/2 DOSE;?
     Route: 042
     Dates: start: 20180306, end: 20180306
  7. NEURONTIN [Concomitant]
     Active Substance: GABAPENTIN
  8. VITAMIN D [Concomitant]
     Active Substance: CHOLECALCIFEROL

REACTIONS (5)
  - Cough [None]
  - Wheezing [None]
  - Hypersensitivity [None]
  - Body temperature increased [None]
  - Urticaria [None]

NARRATIVE: CASE EVENT DATE: 20180307
